FAERS Safety Report 19790785 (Version 1)
Quarter: 2021Q3

REPORT INFORMATION
  Report Type: Spontaneous
  Country: CN (occurrence: CN)
  Receive Date: 20210906
  Receipt Date: 20210906
  Transmission Date: 20211014
  Serious: Yes (Other)
  Sender: FDA-Public Use
  Company Number: CN-SA-2021SA290275

PATIENT
  Age: 12 Year
  Sex: Male

DRUGS (1)
  1. PLAVIX [Suspect]
     Active Substance: CLOPIDOGREL BISULFATE
     Indication: VASCULAR PSEUDOANEURYSM
     Dosage: 1 MG/KG, QD
     Route: 048

REACTIONS (2)
  - Artificial blood vessel occlusion [Unknown]
  - Off label use [Unknown]
